FAERS Safety Report 5176368-8 (Version None)
Quarter: 2006Q4

REPORT INFORMATION
  Report Type: 
  Country: None (occurrence: None)
  Receive Date: 20061207
  Receipt Date: 20061129
  Transmission Date: 20070319
  Serious: Yes (Hospitalization)
  Sender: FDA-Public Use
  Company Number: SPV1-2006-01937

PATIENT
  Age: 90 Year
  Sex: 0

DRUGS (2)
  1. CARBAMAZEPINE [Suspect]
     Indication: TRIGEMINAL NEURALGIA
     Dosage: 200 MG 2X DAILY, ORAL
     Route: 048
     Dates: start: 19980101, end: 20040101
  2. CARBAMAZEPINE [Suspect]
     Indication: TRIGEMINAL NEURALGIA
     Dosage: 200 MG 2X DAILY, ORAL
     Route: 048
     Dates: start: 20050101, end: 20050101

REACTIONS (4)
  - CARDIAC FAILURE [None]
  - DRUG INTERACTION [None]
  - HYPERTENSION [None]
  - VENTRICULAR HYPERTROPHY [None]
